FAERS Safety Report 9845585 (Version 2)
Quarter: 2014Q2

REPORT INFORMATION
  Report Type: Spontaneous
  Country: US (occurrence: None)
  Receive Date: 20140122
  Receipt Date: 20140409
  Transmission Date: 20141212
  Serious: Yes (Hospitalization)
  Sender: FDA-Public Use
  Company Number: QSC-2014-0011

PATIENT
  Age: 29 Year
  Sex: Female
  Weight: 73.5 kg

DRUGS (4)
  1. H.P. ACTHAR GEL [Suspect]
     Indication: MYOSITIS
     Dates: start: 20131219
  2. CYMBALTA [Concomitant]
  3. METHOTREXATE (METHOTREXATE) [Concomitant]
  4. FOLIC ACID (FOLIC ACID) [Concomitant]

REACTIONS (8)
  - Haemoglobin decreased [None]
  - Heart rate increased [None]
  - Haematochezia [None]
  - Abdominal pain [None]
  - Dyspnoea [None]
  - Gastrointestinal haemorrhage [None]
  - Anaemia [None]
  - Pain [None]
